FAERS Safety Report 5361764-6 (Version None)
Quarter: 2007Q2

REPORT INFORMATION
  Report Type: 
  Country: None (occurrence: None)
  Receive Date: 20070615
  Receipt Date: 20070608
  Transmission Date: 20071010
  Serious: Yes (Death, Congenital Anomaly)
  Sender: FDA-Public Use
  Company Number: 2007AL002336

PATIENT

DRUGS (4)
  1. DIAZEPAM [Suspect]
     Indication: DRUG EXPOSURE DURING PREGNANCY
     Dosage: UNKNOWN; UNK; TRPL
     Route: 064
  2. OXYCODONE HCL [Suspect]
     Indication: DRUG EXPOSURE DURING PREGNANCY
     Dosage: UNKNOWN; UNK; TRPL
     Route: 064
  3. AMPHETAMINES [Concomitant]
  4. SEDATIVES [Concomitant]

REACTIONS (20)
  - ACTIVITIES OF DAILY LIVING IMPAIRED [None]
  - BENIGN LYMPH NODE NEOPLASM [None]
  - CAUDA EQUINA SYNDROME [None]
  - CONSTIPATION [None]
  - DEPENDENCE [None]
  - DISORIENTATION [None]
  - DRUG ABUSER [None]
  - DRUG DEPENDENCE [None]
  - DRUG DETOXIFICATION [None]
  - DRUG EXPOSURE DURING PREGNANCY [None]
  - DRUG WITHDRAWAL SYNDROME [None]
  - FACTITIOUS DISORDER [None]
  - HEPATITIS TOXIC [None]
  - HYPERSOMNIA [None]
  - LEGAL PROBLEM [None]
  - LETHARGY [None]
  - LOSS OF CONSCIOUSNESS [None]
  - PAIN [None]
  - URINARY RETENTION [None]
  - WRONG DRUG ADMINISTERED [None]
